FAERS Safety Report 18689505 (Version 1)
Quarter: 2020Q4

REPORT INFORMATION
  Report Type: Spontaneous
  Country: DE (occurrence: DE)
  Receive Date: 20201231
  Receipt Date: 20201231
  Transmission Date: 20210114
  Serious: Yes (Other)
  Sender: FDA-Public Use
  Company Number: DE-UCBSA-2020054717

PATIENT
  Sex: Female

DRUGS (6)
  1. LAMOTRIGINE. [Suspect]
     Active Substance: LAMOTRIGINE
     Dosage: DOSE UP-TITRATED (DOSE AND FREQUENCY UNKNOWN)
     Route: 064
     Dates: start: 2020, end: 20200810
  2. LACOSAMIDE. [Suspect]
     Active Substance: LACOSAMIDE
     Dosage: DOSE UP-TITRATED (DOSE AND FREQUENCY UNKNOWN)
     Route: 064
     Dates: start: 2020, end: 20200810
  3. LAMOTRIGINE. [Suspect]
     Active Substance: LAMOTRIGINE
     Indication: FOETAL EXPOSURE DURING PREGNANCY
     Dosage: 450 MG
     Route: 064
     Dates: start: 2019, end: 2020
  4. LACOSAMIDE. [Suspect]
     Active Substance: LACOSAMIDE
     Indication: FOETAL EXPOSURE DURING PREGNANCY
     Dosage: 300 MG
     Route: 064
     Dates: start: 2019, end: 2020
  5. FYCOMPA [Suspect]
     Active Substance: PERAMPANEL
     Indication: FOETAL EXPOSURE DURING PREGNANCY
     Dosage: 6 MG DAILY
     Route: 064
     Dates: start: 2019, end: 2020
  6. FYCOMPA [Suspect]
     Active Substance: PERAMPANEL
     Dosage: 8 MG DAILY
     Route: 064
     Dates: start: 2020, end: 20200810

REACTIONS (2)
  - Maternal exposure during pregnancy [Unknown]
  - Cataract [Unknown]

NARRATIVE: CASE EVENT DATE: 2019
